FAERS Safety Report 8271565-7 (Version None)
Quarter: 2012Q2

REPORT INFORMATION
  Report Type: 
  Country: None (occurrence: None)
  Receive Date: 20120410
  Receipt Date: 20120405
  Transmission Date: 20120825
  Serious: No
  Sender: FDA-Public Use
  Company Number: US-PFIZER INC-2012043617

PATIENT
  Sex: Female
  Weight: 66 kg

DRUGS (5)
  1. LYRICA [Suspect]
     Indication: NEURALGIA
     Dosage: 75 MG, 2X/DAY
     Route: 048
     Dates: end: 20120223
  2. IBUPROFEN [Concomitant]
     Dosage: 800 MG, 3X/DAY
     Dates: end: 20120223
  3. PERCOCET [Concomitant]
     Dosage: 5/325 MG 1-2 Q4 TO 6 HOURS PRN
     Dates: end: 20120223
  4. LYRICA [Suspect]
     Indication: NERVE INJURY
     Dosage: 75 MG, 1X/DAY FOR 3 DAYS
     Route: 048
     Dates: start: 20120216
  5. ACETYLSALICYLIC ACID [Concomitant]
     Dosage: 325 MG, UNK

REACTIONS (5)
  - FEELING ABNORMAL [None]
  - JAW DISORDER [None]
  - FEELING DRUNK [None]
  - EUPHORIC MOOD [None]
  - SOMNOLENCE [None]
